FAERS Safety Report 9688413 (Version 1)
Quarter: 2013Q4

REPORT INFORMATION
  Report Type: Spontaneous
  Country: US (occurrence: None)
  Receive Date: 20131112
  Receipt Date: 20131112
  Transmission Date: 20140711
  Serious: Yes (Other)
  Sender: FDA-Public Use
  Company Number: AUR-APL-2013-09289

PATIENT
  Age: 46 Year
  Sex: Female
  Weight: 104.3 kg

DRUGS (7)
  1. METFORMIN [Suspect]
     Indication: DIABETIC NEUROPATHY
     Route: 048
  2. TOPAMAX (TOPIRAMATE) [Suspect]
     Indication: DIABETIC NEUROPATHY
     Route: 048
  3. METFORMIN [Concomitant]
  4. METOPROLOL [Concomitant]
  5. SPIRONOLACTONE [Concomitant]
  6. ZOLPIDEM [Concomitant]
  7. VITAMIN D (ERGOCALCIFEROL) [Concomitant]

REACTIONS (4)
  - Paranoia [None]
  - Emotional disorder [None]
  - Panic attack [None]
  - Drug ineffective [None]
